FAERS Safety Report 8608825-3 (Version None)
Quarter: 2012Q3

REPORT INFORMATION
  Report Type: 
  Country: None (occurrence: None)
  Receive Date: 20120821
  Receipt Date: 20120112
  Transmission Date: 20120928
  Serious: Yes (Other)
  Sender: FDA-Public Use
  Company Number: US-ROCHE-1101244

PATIENT
  Age: 58 Year
  Sex: Female

DRUGS (7)
  1. ACTIVASE [Suspect]
     Indication: ACUTE MYOCARDIAL INFARCTION
  2. TAGAMET [Concomitant]
  3. PREMARIN [Concomitant]
  4. VENTOLIN [Concomitant]
  5. NITROGLYCERIN [Concomitant]
     Route: 042
  6. PROVENTIL [Concomitant]
  7. AMITRIPTYLINE HYDROCHLORIDE [Concomitant]

REACTIONS (4)
  - PULMONARY CONGESTION [None]
  - PULMONARY EMBOLISM [None]
  - DYSPNOEA [None]
  - PLEURISY [None]
